FAERS Safety Report 15634665 (Version 3)
Quarter: 2018Q4

REPORT INFORMATION
  Report Type: Report from Study
  Country: US (occurrence: US)
  Receive Date: 20181119
  Receipt Date: 20181211
  Transmission Date: 20190205
  Serious: Yes (Death, Life-Threatening, Hospitalization)
  Sender: FDA-Public Use
  Company Number: US-ACTELION-A-NJ2018-180321

PATIENT
  Age: 85 Year
  Sex: Male

DRUGS (9)
  1. METFORMIN [Concomitant]
     Active Substance: METFORMIN HYDROCHLORIDE
     Dosage: 850 MG, ONE AND HALF TABLETS QD
  2. LOVASTATIN. [Concomitant]
     Active Substance: LOVASTATIN
     Dosage: 40 MG, QPM
     Dates: end: 20181107
  3. CARVEDILOL. [Concomitant]
     Active Substance: CARVEDILOL
     Dosage: 6.25 MG, QD
  4. TAMSULOSIN [Concomitant]
     Active Substance: TAMSULOSIN
     Dosage: 0.4 MG, UNK
  5. PAROXETINE. [Concomitant]
     Active Substance: PAROXETINE
     Dosage: 10 MG, UNK
  6. OPSUMIT [Suspect]
     Active Substance: MACITENTAN
     Indication: PULMONARY ARTERIAL HYPERTENSION
     Dosage: 10 MG, QD
     Route: 048
     Dates: start: 20180827
  7. METFORMIN [Concomitant]
     Active Substance: METFORMIN HYDROCHLORIDE
     Dosage: 850 MG, ONE TABLET, QD
     Dates: end: 20181107
  8. GLIPIZIDE. [Concomitant]
     Active Substance: GLIPIZIDE
     Dosage: UNK MG, DEPENDS ON BLOOD SUGAR
     Dates: end: 20181107
  9. OXYGEN. [Concomitant]
     Active Substance: OXYGEN
     Dosage: 4 L/MIN, UNK
     Dates: start: 201809

REACTIONS (4)
  - Drug ineffective [Unknown]
  - Syncope [Not Recovered/Not Resolved]
  - Death [Fatal]
  - Oxygen consumption increased [Not Recovered/Not Resolved]

NARRATIVE: CASE EVENT DATE: 201809
